FAERS Safety Report 14178921 (Version 1)
Quarter: 2017Q4

REPORT INFORMATION
  Report Type: Spontaneous
  Country: US (occurrence: US)
  Receive Date: 20171110
  Receipt Date: 20171110
  Transmission Date: 20180321
  Serious: Yes (Death, Hospitalization, Other)
  Sender: FDA-Public Use
  Company Number: US-APOTEX-2017AP020856

PATIENT
  Age: 19 Year
  Sex: Male

DRUGS (18)
  1. LEVETIRACETAM. [Suspect]
     Active Substance: LEVETIRACETAM
     Dosage: 2000 MG, TID VIA FEEDING TUBE
     Route: 050
  2. LACOSAMIDE. [Suspect]
     Active Substance: LACOSAMIDE
     Indication: STATUS EPILEPTICUS
     Dosage: 200 MG, TID
     Route: 048
  3. KETAMIN [Suspect]
     Active Substance: KETAMINE
     Indication: STATUS EPILEPTICUS
     Dosage: UNK
     Route: 065
  4. PHENOBAR [Suspect]
     Active Substance: PHENOBARBITAL
     Indication: STATUS EPILEPTICUS
     Dosage: 400 MG, TID
     Route: 048
  5. PHENOBAR [Suspect]
     Active Substance: PHENOBARBITAL
     Dosage: 550 MG, TID VIA FEEDING TUBE
     Route: 050
  6. CLONAZEPAM TABLETS USP [Suspect]
     Active Substance: CLONAZEPAM
     Indication: STATUS EPILEPTICUS
     Dosage: 2 MG, QID VIA FEEDING TUBE
     Route: 050
  7. PHENYTOIN                          /00017402/ [Suspect]
     Active Substance: PHENYTOIN
     Indication: STATUS EPILEPTICUS
     Dosage: 325 MG, TID VIA FEEDING TUBE
     Route: 050
  8. LORAZEPAM. [Concomitant]
     Active Substance: LORAZEPAM
     Indication: STATUS EPILEPTICUS
     Dosage: 2 MG, UNK MULTIPLE DOSES
     Route: 042
  9. ZONISAMIDE. [Suspect]
     Active Substance: ZONISAMIDE
     Indication: STATUS EPILEPTICUS
     Dosage: 300 MG, BID
     Route: 048
  10. FELBAMATE. [Suspect]
     Active Substance: FELBAMATE
     Indication: STATUS EPILEPTICUS
     Dosage: 800 MG, TID VIA FEEDING TUBE
     Route: 050
  11. CLOBAZAM [Suspect]
     Active Substance: CLOBAZAM
     Indication: STATUS EPILEPTICUS
     Dosage: 20 MG, TID VIA FEEDING TUBE
     Route: 050
  12. LEVETIRACETAM. [Suspect]
     Active Substance: LEVETIRACETAM
     Indication: STATUS EPILEPTICUS
     Dosage: 1500 MG, TID
     Route: 048
  13. ZONISAMIDE. [Suspect]
     Active Substance: ZONISAMIDE
     Dosage: 200 MG, TID VIA FEEDING TUBE
     Route: 050
  14. CLORAZEPATE [Suspect]
     Active Substance: CLORAZEPATE DIPOTASSIUM
     Indication: STATUS EPILEPTICUS
     Dosage: 15 MG, BID
     Route: 048
  15. RUFINAMIDE [Suspect]
     Active Substance: RUFINAMIDE
     Indication: STATUS EPILEPTICUS
     Dosage: 1200 MG, BID VIA FEEDING TUBE
     Route: 050
  16. HALOPERIDOL                        /00027402/ [Concomitant]
     Active Substance: HALOPERIDOL
     Indication: AGITATION
     Dosage: UNK
     Route: 065
  17. TOPIRAMATE. [Suspect]
     Active Substance: TOPIRAMATE
     Indication: STATUS EPILEPTICUS
     Dosage: 100 MG, BID VIA FEEDING TUBE
     Route: 050
  18. QUETIAPINE. [Concomitant]
     Active Substance: QUETIAPINE
     Indication: AGITATION
     Dosage: UNK
     Route: 065

REACTIONS (7)
  - Drug ineffective [Fatal]
  - Condition aggravated [Not Recovered/Not Resolved]
  - Small intestinal obstruction [None]
  - Gastrointestinal stoma output decreased [None]
  - Seizure [None]
  - Abdominal distension [None]
  - Unresponsive to stimuli [Not Recovered/Not Resolved]
